FAERS Safety Report 15941159 (Version 2)
Quarter: 2019Q1

REPORT INFORMATION
  Report Type: Spontaneous
  Country: US (occurrence: US)
  Receive Date: 20190208
  Receipt Date: 20190215
  Transmission Date: 20190417
  Serious: Yes (Hospitalization)
  Sender: FDA-Public Use
  Company Number: US-ACTELION-A-US2019-185571

PATIENT
  Age: 86 Year
  Sex: Female

DRUGS (20)
  1. FUROSEMIDE. [Concomitant]
     Active Substance: FUROSEMIDE
  2. METOPROLOL SUCCINATE. [Concomitant]
     Active Substance: METOPROLOL SUCCINATE
  3. TIKOSYN [Concomitant]
     Active Substance: DOFETILIDE
  4. OPSUMIT [Suspect]
     Active Substance: MACITENTAN
     Indication: PULMONARY ARTERIAL HYPERTENSION
     Dosage: 10 MG, QD
     Route: 048
     Dates: start: 20190110
  5. DILT-XR [Concomitant]
     Active Substance: DILTIAZEM
  6. PREDNISONE. [Concomitant]
     Active Substance: PREDNISONE
  7. ROPINIROLE. [Concomitant]
     Active Substance: ROPINIROLE
  8. AMOX+AC CLAV ACV [Concomitant]
  9. ATORVASTATIN [Concomitant]
     Active Substance: ATORVASTATIN
  10. AZITHROMYCIN ANHYDROUS. [Concomitant]
     Active Substance: AZITHROMYCIN ANHYDROUS
  11. CLOPIDOGREL [Concomitant]
     Active Substance: CLOPIDOGREL BISULFATE
  12. ZOLPIDEM [Concomitant]
     Active Substance: ZOLPIDEM\ZOLPIDEM TARTRATE
  13. ADEMPAS [Suspect]
     Active Substance: RIOCIGUAT
     Indication: PRODUCT USED FOR UNKNOWN INDICATION
     Route: 065
  14. ANORO ELLIPTA [Concomitant]
     Active Substance: UMECLIDINIUM BROMIDE\VILANTEROL TRIFENATATE
  15. ISOSORB MONO [Concomitant]
     Active Substance: ISOSORBIDE MONONITRATE
  16. LEVOTHYROXIN [Concomitant]
     Active Substance: LEVOTHYROXINE
  17. HYDRO 35 [Concomitant]
     Active Substance: UREA
  18. GABAPENTIN. [Concomitant]
     Active Substance: GABAPENTIN
  19. WARFARIN [Concomitant]
     Active Substance: WARFARIN
  20. AMIODARONE [Concomitant]
     Active Substance: AMIODARONE

REACTIONS (3)
  - Hypoacusis [Unknown]
  - Pericardial effusion [Unknown]
  - Adverse reaction [Unknown]
